FAERS Safety Report 9180772 (Version 1)
Quarter: 2013Q1

REPORT INFORMATION
  Report Type: Spontaneous
  Country: GB (occurrence: None)
  Receive Date: 20130320
  Receipt Date: 20130320
  Transmission Date: 20140127
  Serious: Yes (Other)
  Sender: FDA-Public Use
  Company Number: 2013P1003059

PATIENT
  Age: 63 Year
  Sex: Male

DRUGS (1)
  1. CETIRIZINE [Suspect]
     Dosage: 10 MG; QD;

REACTIONS (2)
  - Tubulointerstitial nephritis [None]
  - Hypersensitivity [None]
